FAERS Safety Report 24108892 (Version 2)
Quarter: 2024Q4

REPORT INFORMATION
  Report Type: Spontaneous
  Country: FR (occurrence: FR)
  Receive Date: 20240718
  Receipt Date: 20241003
  Transmission Date: 20250115
  Serious: Yes (Hospitalization, Other)
  Sender: ROCHE
  Company Number: FR-ROCHE-10000020048

PATIENT
  Age: 77 Year
  Sex: Female

DRUGS (14)
  1. VABYSMO [Suspect]
     Active Substance: FARICIMAB-SVOA
     Indication: Neovascular age-related macular degeneration
     Dosage: 2ND IVT : OD = 02-APR-2024 OS = 04-APR-2024?3RD IVT : OD = 30-APR-2024 OS = 02-MAY-2024?4TH AND LAST
     Route: 050
     Dates: start: 20240305
  2. VABYSMO [Suspect]
     Active Substance: FARICIMAB-SVOA
     Dosage: 2ND IVT : OD = 02-APR-2024 OS = 04-APR-2024?3RD IVT : OD = 30-APR-2024 OS = 02-MAY-2024?4TH AND LAST
     Route: 050
     Dates: start: 20240402
  3. VABYSMO [Suspect]
     Active Substance: FARICIMAB-SVOA
     Dosage: 2ND IVT : OD = 02-APR-2024 OS = 04-APR-2024?3RD IVT : OD = 30-APR-2024 OS = 02-MAY-2024?4TH AND LAST
     Route: 050
     Dates: start: 20240430
  4. VABYSMO [Suspect]
     Active Substance: FARICIMAB-SVOA
     Dosage: 2ND IVT : OD = 02-APR-2024 OS = 04-APR-2024?3RD IVT : OD = 30-APR-2024 OS = 02-MAY-2024?4TH AND LAST
     Route: 050
     Dates: start: 20240528
  5. KARDEGIC [Concomitant]
     Active Substance: ASPIRIN DL-LYSINE
  6. COVERAM [Concomitant]
     Active Substance: AMLODIPINE\PERINDOPRIL
  7. BISOPROLOL [Concomitant]
     Active Substance: BISOPROLOL\BISOPROLOL FUMARATE
  8. TAHOR [Concomitant]
     Active Substance: ATORVASTATIN CALCIUM
  9. LERCANIDIPINE [Concomitant]
     Active Substance: LERCANIDIPINE
  10. OMEPRAZOLE [Concomitant]
     Active Substance: OMEPRAZOLE
  11. FUROSEMIDE [Concomitant]
     Active Substance: FUROSEMIDE
  12. ELIQUIS [Concomitant]
     Active Substance: APIXABAN
  13. CETIRIZINE [Concomitant]
     Active Substance: CETIRIZINE HYDROCHLORIDE
  14. LEVOTHYROXINE [Concomitant]
     Active Substance: LEVOTHYROXINE

REACTIONS (4)
  - Retinal occlusive vasculitis [Not Recovered/Not Resolved]
  - Uveitis [Not Recovered/Not Resolved]
  - Keratic precipitates [Not Recovered/Not Resolved]
  - Visual impairment [Recovering/Resolving]

NARRATIVE: CASE EVENT DATE: 20240603
